FAERS Safety Report 22043300 (Version 3)
Quarter: 2023Q1

REPORT INFORMATION
  Report Type: Report from Study
  Country: VN (occurrence: VN)
  Receive Date: 20230228
  Receipt Date: 20230315
  Transmission Date: 20230418
  Serious: Yes (Hospitalization)
  Sender: FDA-Public Use
  Company Number: VN-002147023-NVSC2023VN026682

PATIENT
  Age: 50 Year
  Sex: Male
  Weight: 52 kg

DRUGS (6)
  1. TRICLABENDAZOLE [Suspect]
     Active Substance: TRICLABENDAZOLE
     Indication: Fascioliasis
     Dosage: 625 MG, Q12H
     Route: 048
     Dates: start: 20230201
  2. DIETARY SUPPLEMENT\HERBALS\MILK THISTLE [Concomitant]
     Active Substance: DIETARY SUPPLEMENT\HERBALS\MILK THISTLE
     Indication: Fascioliasis
     Dosage: UNK
     Route: 065
     Dates: start: 20230202
  3. GLUCOLYTE-2 [Concomitant]
     Indication: Pneumonia
     Dosage: UNK
     Route: 065
     Dates: start: 20230215, end: 20230216
  4. ARGININ [Concomitant]
     Indication: Fascioliasis
     Dosage: UNK
     Route: 065
     Dates: start: 20230202
  5. ACETAMINOPHEN [Concomitant]
     Active Substance: ACETAMINOPHEN
     Indication: Pyrexia
     Dosage: UNK
     Route: 065
     Dates: start: 20230202
  6. ERTAPENEM [Concomitant]
     Active Substance: ERTAPENEM
     Indication: Pneumonia
     Dosage: UNK
     Route: 065
     Dates: start: 20230215, end: 20230220

REACTIONS (1)
  - Sepsis [Recovering/Resolving]

NARRATIVE: CASE EVENT DATE: 20230204
